FAERS Safety Report 11155412 (Version 1)
Quarter: 2015Q2

REPORT INFORMATION
  Report Type: Spontaneous
  Country: FR (occurrence: FR)
  Receive Date: 20150602
  Receipt Date: 20150602
  Transmission Date: 20150821
  Serious: Yes (Life-Threatening, Hospitalization)
  Sender: FDA-Public Use
  Company Number: FR-PFIZER INC-2015180831

PATIENT
  Sex: Male
  Weight: 1.47 kg

DRUGS (8)
  1. ENDOXAN /00021101/ [Suspect]
     Active Substance: CYCLOPHOSPHAMIDE
     Dosage: UNK, SINGLE
     Route: 064
     Dates: start: 20150212, end: 20150212
  2. DOXORUBICIN HCL [Suspect]
     Active Substance: DOXORUBICIN HYDROCHLORIDE
     Dosage: UNK, SINGLE
     Route: 064
     Dates: start: 20150121, end: 20150121
  3. DOXORUBICIN HCL [Suspect]
     Active Substance: DOXORUBICIN HYDROCHLORIDE
     Dosage: UNK, SINGLE
     Route: 064
     Dates: start: 20150212, end: 20150212
  4. XELODA [Concomitant]
     Active Substance: CAPECITABINE
     Dosage: UNK, SINGLE
     Route: 064
     Dates: start: 20150121, end: 20150121
  5. ENDOXAN /00021101/ [Suspect]
     Active Substance: CYCLOPHOSPHAMIDE
     Dosage: UNK, SINGLE
     Route: 064
     Dates: start: 20150127, end: 20150127
  6. TAXOTERE [Concomitant]
     Active Substance: DOCETAXEL
     Dosage: UNK, SINGLE
     Route: 064
     Dates: start: 20150121, end: 20150121
  7. XELODA [Concomitant]
     Active Substance: CAPECITABINE
     Dosage: UNK, SINGLE
     Route: 064
     Dates: start: 20150212, end: 20150212
  8. TAXOTERE [Concomitant]
     Active Substance: DOCETAXEL
     Dosage: UNK, SINGLE
     Route: 064
     Dates: start: 20150212, end: 20150212

REACTIONS (3)
  - Maternal exposure during pregnancy [Recovering/Resolving]
  - Anaemia [Recovering/Resolving]
  - Premature delivery [Recovered/Resolved]

NARRATIVE: CASE EVENT DATE: 20150217
